FAERS Safety Report 16995162 (Version 2)
Quarter: 2020Q2

REPORT INFORMATION
  Report Type: Spontaneous
  Country: BG (occurrence: BG)
  Receive Date: 20191105
  Receipt Date: 20200528
  Transmission Date: 20200713
  Serious: Yes (Death, Other)
  Sender: FDA-Public Use
  Company Number: BG-SA-2018SA082941

PATIENT
  Age: 67 Year
  Sex: Male

DRUGS (12)
  1. RADIUM RA 223 DICHLORIDE [Suspect]
     Active Substance: RADIUM RA-223 DICHLORIDE
     Indication: PROSTATE CANCER
     Dosage: A TOTAL OF 35.2 MBQ (55 KBQ / KG) AND AN AVERAGE OF 8.8 MBQ OF APPLICATION
     Route: 042
     Dates: start: 20170425, end: 20170719
  2. DENOSUMAB [Suspect]
     Active Substance: DENOSUMAB
     Indication: ADENOCARCINOMA
     Dosage: USED AS INITIAL TREATMENT
     Route: 042
  3. DOCETAXEL. [Suspect]
     Active Substance: DOCETAXEL
     Indication: PROSTATE CANCER
     Dosage: UNK UNK,UNK
     Route: 042
  4. DOCETAXEL. [Suspect]
     Active Substance: DOCETAXEL
     Indication: ADENOCARCINOMA
  5. MITOXANTRONE [Suspect]
     Active Substance: MITOXANTRONE HYDROCHLORIDE
     Indication: PROSTATE CANCER
     Dosage: UNK UNK,UNK
     Route: 042
     Dates: start: 2016
  6. LUTEINIZING HORMONE-RELEASING HORMONE [Suspect]
     Active Substance: GONADORELIN
     Indication: ADENOCARCINOMA
     Dosage: UNK
     Route: 065
  7. BICALUTAMIDE. [Suspect]
     Active Substance: BICALUTAMIDE
     Indication: ADENOCARCINOMA
     Dosage: UNK UNK,UNK
     Route: 042
  8. DENOSUMAB [Suspect]
     Active Substance: DENOSUMAB
     Indication: PROSTATE CANCER
  9. BISPHOSPHONATES [Concomitant]
     Active Substance: UNSPECIFIED INGREDIENT
     Indication: ADENOCARCINOMA
  10. ENZALUTAMIDE [Suspect]
     Active Substance: ENZALUTAMIDE
     Indication: PROSTATE CANCER
     Dosage: 160 MG,QD
     Route: 042
     Dates: start: 2015
  11. RADIUM RA 223 DICHLORIDE [Suspect]
     Active Substance: RADIUM RA-223 DICHLORIDE
     Dosage: UNK8.8MBQ PER
  12. BICALUTAMIDE. [Suspect]
     Active Substance: BICALUTAMIDE
     Indication: PROSTATE CANCER

REACTIONS (8)
  - Death [Fatal]
  - Drug ineffective [Unknown]
  - Disease recurrence [Unknown]
  - Prostate cancer recurrent [Unknown]
  - Disease progression [Unknown]
  - Prostate cancer [Unknown]
  - Thrombocytopenia [Recovered/Resolved]
  - Anaemia [Recovered/Resolved]

NARRATIVE: CASE EVENT DATE: 201707
